FAERS Safety Report 23927503 (Version 2)
Quarter: 2024Q2

REPORT INFORMATION
  Report Type: Spontaneous
  Country: US (occurrence: US)
  Receive Date: 20240531
  Receipt Date: 20240614
  Transmission Date: 20240716
  Serious: Yes (Other)
  Sender: FDA-Public Use
  Company Number: US-TEVA-VS-3204483

PATIENT
  Age: 54 Year
  Sex: Female

DRUGS (7)
  1. AMPHETAMINE\DEXTROAMPHETAMINE [Suspect]
     Active Substance: AMPHETAMINE\DEXTROAMPHETAMINE
     Indication: Attention deficit hyperactivity disorder
     Route: 065
  2. CYCLOBENZAPRINE [Suspect]
     Active Substance: CYCLOBENZAPRINE
     Indication: Pain
     Route: 065
  3. METHOCARBAMOL [Suspect]
     Active Substance: METHOCARBAMOL
     Indication: Pain
     Route: 065
  4. OXYCODONE AND ACETAMINOPHEN [Suspect]
     Active Substance: ACETAMINOPHEN\OXYCODONE HYDROCHLORIDE
     Indication: Pain
     Route: 065
  5. ZOLPIDEM [Suspect]
     Active Substance: ZOLPIDEM TARTRATE
     Indication: Insomnia
     Route: 065
     Dates: end: 202307
  6. CLONAZEPAM [Suspect]
     Active Substance: CLONAZEPAM
     Indication: Product used for unknown indication
     Route: 065
     Dates: start: 202307
  7. PREGABALIN [Suspect]
     Active Substance: PREGABALIN
     Indication: Pain
     Route: 065

REACTIONS (2)
  - Insomnia [Unknown]
  - Somnambulism [Recovered/Resolved]
